FAERS Safety Report 17354668 (Version 1)
Quarter: 2020Q1

REPORT INFORMATION
  Report Type: Spontaneous
  Country: US (occurrence: US)
  Receive Date: 20200131
  Receipt Date: 20200131
  Transmission Date: 20200409
  Serious: No
  Sender: FDA-Public Use
  Company Number: US-SUNOVION-2020SUN000241

PATIENT
  Sex: Male

DRUGS (1)
  1. LATUDA [Suspect]
     Active Substance: LURASIDONE HYDROCHLORIDE
     Indication: PRODUCT USED FOR UNKNOWN INDICATION
     Dosage: UNK
     Route: 048

REACTIONS (5)
  - Malaise [Not Recovered/Not Resolved]
  - Anger [Not Recovered/Not Resolved]
  - Therapy cessation [Unknown]
  - Belligerence [Not Recovered/Not Resolved]
  - Somnolence [Not Recovered/Not Resolved]
